FAERS Safety Report 7379904-6 (Version None)
Quarter: 2011Q1

REPORT INFORMATION
  Report Type: 
  Country: None (occurrence: None)
  Receive Date: 20110318
  Receipt Date: 20110309
  Transmission Date: 20110831
  Serious: Yes (Disabling)
  Sender: FDA-Public Use
  Company Number: 1000019282

PATIENT
  Age: 65 Year
  Sex: Female
  Weight: 64.6 kg

DRUGS (14)
  1. CITALOPRAM (CITALOPRAM HYDROBROMIDE) (CITALOPRAM HYDROBROMIDE) [Concomitant]
  2. NITROFURANTOIN (NITROFURANTOIN) (NITROFURANTOIN) [Concomitant]
  3. PIROXICAM (PIROXICAM) (PIROXICAM) [Concomitant]
  4. TIOTROPIUM BROMIDE (TIOTROPIUM BROMIDE) (TIOTROPIUM BROMIDE) [Concomitant]
  5. ROFLUMILAST (ROFLUMILAST) (TABLETS) [Suspect]
     Dosage: ORAL
     Route: 048
     Dates: start: 20110210, end: 20110303
  6. DEXAMETHASONE [Concomitant]
  7. DOXYCYCLINE [Concomitant]
  8. TILDIEM (DILTIAZEM HYDROCHLORIDE) (DILTIAZEM HYDROCHLORIDE) [Concomitant]
  9. ACYCLOVIR [Concomitant]
  10. CARBOCISTEINE (CARBOCISTEINE) (CARBOCISTEINE) [Concomitant]
  11. SIMVASTATIN [Concomitant]
  12. AMOXICILLIN [Concomitant]
  13. SERETIDE (FLUTICASONE, SALMETEROL) (FLUTICASONE, SALMETEROL) [Concomitant]
  14. OMEPRAZOLE [Concomitant]

REACTIONS (2)
  - IMPAIRED DRIVING ABILITY [None]
  - DIZZINESS [None]
